FAERS Safety Report 7403095-6 (Version None)
Quarter: 2011Q2

REPORT INFORMATION
  Report Type: 
  Country: None (occurrence: None)
  Receive Date: 20110408
  Receipt Date: 20110321
  Transmission Date: 20111010
  Serious: No
  Sender: FDA-Public Use
  Company Number: US-NOVEN-11US002039

PATIENT
  Sex: Female

DRUGS (2)
  1. OXYCODONE [Concomitant]
     Indication: BREAKTHROUGH PAIN
     Dosage: 5 MG, UNKNOWN
     Route: 048
  2. FENTANYL [Suspect]
     Indication: PAIN
     Dosage: 75 UG, UNKNOWN
     Route: 062
     Dates: start: 20101201

REACTIONS (4)
  - DRUG ADMINISTRATION ERROR [None]
  - PRODUCT QUALITY ISSUE [None]
  - DRUG WITHDRAWAL SYNDROME [None]
  - INADEQUATE ANALGESIA [None]
